FAERS Safety Report 4755880-7 (Version None)
Quarter: 2005Q3

REPORT INFORMATION
  Report Type: 
  Country: None (occurrence: None)
  Receive Date: 20050830
  Receipt Date: 20050714
  Transmission Date: 20060218
  Serious: Yes (Other)
  Sender: FDA-Public Use
  Company Number: US-BRISTOL-MYERS SQUIBB COMPANY-13037619

PATIENT
  Age: 52 Year
  Sex: Male
  Weight: 88 kg

DRUGS (2)
  1. ERBITUX [Suspect]
     Indication: COLORECTAL CANCER
     Route: 042
     Dates: start: 20050713, end: 20050713
  2. AVASTIN [Concomitant]
     Route: 042
     Dates: start: 20050713, end: 20050713

REACTIONS (1)
  - HYPERSENSITIVITY [None]
